FAERS Safety Report 23060327 (Version 4)
Quarter: 2025Q3

REPORT INFORMATION
  Report Type: Spontaneous
  Country: AU (occurrence: AU)
  Receive Date: 20231012
  Receipt Date: 20250805
  Transmission Date: 20251021
  Serious: Yes (Hospitalization, Other)
  Sender: MYLAN
  Company Number: AU-MYLANLABS-2023M1106602

PATIENT
  Age: 47 Year
  Sex: Female

DRUGS (16)
  1. CLOZARIL [Suspect]
     Active Substance: CLOZAPINE
     Indication: Schizophrenia
  2. CLOZARIL [Suspect]
     Active Substance: CLOZAPINE
  3. CLOZARIL [Suspect]
     Active Substance: CLOZAPINE
     Dosage: 400 MILLIGRAM, QD
     Dates: start: 201001
  4. CLOZARIL [Suspect]
     Active Substance: CLOZAPINE
  5. QUETIAPINE [Suspect]
     Active Substance: QUETIAPINE
     Indication: Product used for unknown indication
     Dosage: UNK, TID (IR 100MG MANE : 100MG MIDDAY, 250MG NOCTE
  6. SERTRALINE [Suspect]
     Active Substance: SERTRALINE HYDROCHLORIDE
     Indication: Product used for unknown indication
     Dosage: 50 MILLIGRAM, AM
  7. LITHIUM CARBONATE [Suspect]
     Active Substance: LITHIUM CARBONATE
     Indication: Product used for unknown indication
     Dosage: UNK, BID (250MG MANE 750 MG NOCTE)
  8. LITHIUM CARBONATE [Suspect]
     Active Substance: LITHIUM CARBONATE
  9. LITHIUM CARBONATE [Suspect]
     Active Substance: LITHIUM CARBONATE
     Dosage: 250 MILLIGRAM, BID
     Dates: start: 202201
  10. ZUCLOPENTHIXOL [Suspect]
     Active Substance: ZUCLOPENTHIXOL
     Indication: Product used for unknown indication
     Dosage: 600 MILLIGRAM, BIWEEKLY
  11. VALPROATE [Concomitant]
     Active Substance: VALPROIC ACID
     Indication: Mood swings
     Dosage: 1 GRAM, BID
     Dates: start: 201001, end: 201003
  12. VALPROATE [Concomitant]
     Active Substance: VALPROIC ACID
     Dosage: 700 MILLIGRAM, BID
     Dates: start: 20210817
  13. QUETIAPINE [Concomitant]
     Active Substance: QUETIAPINE
     Dosage: 300 MILLIGRAM NOCTE
     Dates: start: 201901, end: 202006
  14. QUETIAPINE [Concomitant]
     Active Substance: QUETIAPINE
     Dosage: 600 MILLIGRAM, QD
     Dates: start: 20210525, end: 20210831
  15. LITHIUM ASPARTATE [Concomitant]
     Active Substance: LITHIUM ASPARTATE
     Indication: Product used for unknown indication
  16. LITHIUM ASPARTATE [Concomitant]
     Active Substance: LITHIUM ASPARTATE

REACTIONS (8)
  - Malaise [Unknown]
  - Neutropenia [Unknown]
  - Hallucination, auditory [Unknown]
  - Hallucination, visual [Unknown]
  - Schizophrenia [Unknown]
  - Illness [Unknown]
  - Delusion [Unknown]
  - Persecutory delusion [Unknown]

NARRATIVE: CASE EVENT DATE: 20210801
